FAERS Safety Report 6267796-8 (Version None)
Quarter: 2009Q3

REPORT INFORMATION
  Report Type: 
  Country: None (occurrence: None)
  Receive Date: 20090714
  Receipt Date: 20090702
  Transmission Date: 20100115
  Serious: Yes (Hospitalization, Other)
  Sender: FDA-Public Use
  Company Number: FR-PFIZER INC-2009155439

PATIENT
  Age: 75 Year

DRUGS (4)
  1. LYRICA [Suspect]
     Indication: RESTLESS LEGS SYNDROME
     Dosage: 75 MG, 1X/DAY
     Dates: start: 20060101
  2. CRESTOR [Concomitant]
     Indication: DYSLIPIDAEMIA
     Dosage: 1 DF, 1X/DAY
     Route: 048
  3. MESTINON [Concomitant]
     Indication: URINARY TRACT DISORDER
     Dosage: 1 DF, 3X/DAY
  4. FORLAX [Concomitant]
     Indication: CONSTIPATION
     Dosage: 2 DF, 1X/DAY

REACTIONS (4)
  - GENITAL PROLAPSE [None]
  - URINARY INCONTINENCE [None]
  - URINARY RETENTION [None]
  - WEIGHT INCREASED [None]
